FAERS Safety Report 8432688-2 (Version None)
Quarter: 2012Q2

REPORT INFORMATION
  Report Type: 
  Country: None (occurrence: None)
  Receive Date: 20120613
  Receipt Date: 20120607
  Transmission Date: 20120825
  Serious: Yes (Life-Threatening, Hospitalization, Other)
  Sender: FDA-Public Use
  Company Number: US-TEVA-342067USA

PATIENT
  Sex: Female

DRUGS (1)
  1. ZOLPIDEM [Suspect]
     Indication: SLEEP DISORDER
     Dosage: HAS BEEN TAKING FOR APPROXIMATELY A YEAR
     Route: 048

REACTIONS (9)
  - WEIGHT INCREASED [None]
  - LOSS OF CONSCIOUSNESS [None]
  - COMA [None]
  - RESPIRATORY FUME INHALATION DISORDER [None]
  - SLEEP DISORDER [None]
  - WEIGHT DECREASED [None]
  - SOMNAMBULISM [None]
  - OVERDOSE [None]
  - ROAD TRAFFIC ACCIDENT [None]
